FAERS Safety Report 8811181 (Version 3)
Quarter: 2013Q4

REPORT INFORMATION
  Report Type: Spontaneous
  Country: US (occurrence: US)
  Receive Date: 20120927
  Receipt Date: 20131031
  Transmission Date: 20140711
  Serious: Yes (Death)
  Sender: FDA-Public Use
  Company Number: PHEH2012US018740

PATIENT
  Age: 86 Year
  Sex: Female

DRUGS (2)
  1. EXELON PATCH [Suspect]
     Indication: DEMENTIA ALZHEIMER^S TYPE
     Dosage: 0.5 DF (4.6 MG), UNK
     Route: 062
     Dates: start: 20120812
  2. EXELON PATCH [Suspect]
     Dosage: 4.6 MG, UNK
     Route: 062
     Dates: start: 20120913

REACTIONS (2)
  - Death [Fatal]
  - Wrong technique in drug usage process [Unknown]
